FAERS Safety Report 10441214 (Version 1)
Quarter: 2014Q3

REPORT INFORMATION
  Report Type: Report from Study
  Country: NL (occurrence: NL)
  Receive Date: 20140909
  Receipt Date: 20140909
  Transmission Date: 20150326
  Serious: Yes (Hospitalization, Other)
  Sender: FDA-Public Use
  Company Number: NL-009507513-1409NLD002270

PATIENT
  Age: 48 Year
  Sex: Male

DRUGS (6)
  1. RALTEGRAVIR POTASSIUM [Concomitant]
     Active Substance: RALTEGRAVIR POTASSIUM
     Indication: HIV INFECTION
     Dosage: TOTAL DAILY DOSE: 800MG, BID
     Route: 048
  2. BOCEPREVIR [Suspect]
     Active Substance: BOCEPREVIR
     Indication: ACUTE HEPATITIS C
     Dosage: TOTAL DAILY DOSE: 2400MG , TID, STRENGTH: 200MG
     Route: 048
     Dates: start: 20140718
  3. RIBAVIRIN. [Suspect]
     Active Substance: RIBAVIRIN
     Dosage: TOTAL DAILY DOSE:800MG
     Route: 048
  4. RIBAVIRIN. [Suspect]
     Active Substance: RIBAVIRIN
     Indication: ACUTE HEPATITIS C
     Dosage: TOTAL DAILY DOSE:1200MG, 3 TABLETS, BID
     Route: 048
     Dates: start: 20140718
  5. PEGINTERFERON ALFA-2B [Suspect]
     Active Substance: PEGINTERFERON ALFA-2B
     Indication: ACUTE HEPATITIS C
     Dosage: UNK, QW,FORMULATION: SUSPENSION
     Route: 058
     Dates: start: 20140718
  6. TRUVADA [Concomitant]
     Active Substance: EMTRICITABINE\TENOFOVIR DISOPROXIL FUMARATE
     Indication: HIV INFECTION
     Dosage: TOTAL DAILY DOSE: 200/245MG , QD, STRENGTH: 200/245MG
     Route: 048

REACTIONS (1)
  - Transfusion [Recovered/Resolved]

NARRATIVE: CASE EVENT DATE: 20140827
